FAERS Safety Report 6670914-0 (Version None)
Quarter: 2010Q2

REPORT INFORMATION
  Report Type: 
  Country: None (occurrence: None)
  Receive Date: 20100406
  Receipt Date: 20100406
  Transmission Date: 20101027
  Serious: Yes (Hospitalization)
  Sender: FDA-Public Use
  Company Number: None

PATIENT
  Age: 82 Year
  Sex: Male
  Weight: 89 kg

DRUGS (1)
  1. ERTAPENEM [Suspect]
     Indication: URINARY TRACT INFECTION
     Dosage: PTA DAILY IV
     Route: 042
     Dates: start: 20090303, end: 20090308

REACTIONS (2)
  - CONVULSION [None]
  - LOSS OF CONSCIOUSNESS [None]
